FAERS Safety Report 14076055 (Version 1)
Quarter: 2017Q4

REPORT INFORMATION
  Report Type: Spontaneous
  Country: US (occurrence: US)
  Receive Date: 20171010
  Receipt Date: 20171010
  Transmission Date: 20180321
  Serious: No
  Sender: FDA-Public Use
  Company Number: US-MYLANLABS-2017M1013116

PATIENT
  Sex: Female

DRUGS (8)
  1. EMSAM [Suspect]
     Active Substance: SELEGILINE
     Indication: MAJOR DEPRESSION
     Dosage: UNK
     Dates: start: 201509
  2. EMSAM [Suspect]
     Active Substance: SELEGILINE
     Indication: SOCIAL ANXIETY DISORDER
  3. EMSAM [Suspect]
     Active Substance: SELEGILINE
     Indication: MAJOR DEPRESSION
     Dosage: UNK
  4. XANAX [Concomitant]
     Active Substance: ALPRAZOLAM
     Indication: ANXIETY
  5. EMSAM [Suspect]
     Active Substance: SELEGILINE
     Indication: SOCIAL ANXIETY DISORDER
  6. EMSAM [Suspect]
     Active Substance: SELEGILINE
     Indication: SOCIAL ANXIETY DISORDER
  7. EMSAM [Suspect]
     Active Substance: SELEGILINE
     Indication: MAJOR DEPRESSION
     Dosage: UNK
  8. XANAX [Concomitant]
     Active Substance: ALPRAZOLAM
     Indication: INSOMNIA
     Dosage: UNK, PRN

REACTIONS (10)
  - Weight increased [Unknown]
  - Back pain [Unknown]
  - Insomnia [Unknown]
  - Decreased appetite [Unknown]
  - Unevaluable event [Unknown]
  - Fatigue [Unknown]
  - Anxiety [Not Recovered/Not Resolved]
  - Irritability [Unknown]
  - Depression [Unknown]
  - Mood swings [Unknown]

NARRATIVE: CASE EVENT DATE: 201512
